FAERS Safety Report 9158875 (Version 2)
Quarter: 2013Q1

REPORT INFORMATION
  Report Type: Spontaneous
  Country: DK (occurrence: None)
  Receive Date: 20130211
  Receipt Date: 20130214
  Transmission Date: 20140127
  Serious: Yes (Hospitalization)
  Sender: FDA-Public Use
  Company Number: 2013MA000997

PATIENT
  Age: 82 Year
  Sex: Male

DRUGS (2)
  1. BUTALBITAL\CODEINE\SALICYLIC ACID [Suspect]
     Dates: start: 20120101, end: 20130103
  2. CLOPIDOGREL (CLOPIDOGREL) [Suspect]
     Route: 048
     Dates: start: 20120101, end: 20130103

REACTIONS (2)
  - Anaemia [None]
  - Melaena [None]
